FAERS Safety Report 16482641 (Version 1)
Quarter: 2019Q2

REPORT INFORMATION
  Report Type: Spontaneous
  Country: CA (occurrence: CA)
  Receive Date: 20190627
  Receipt Date: 20190627
  Transmission Date: 20190711
  Serious: Yes (Hospitalization, Other)
  Sender: FDA-Public Use
  Company Number: PHHY2019CA130529

PATIENT
  Age: 35 Year
  Sex: Male

DRUGS (1)
  1. GLIVEC [Suspect]
     Active Substance: IMATINIB MESYLATE
     Indication: MYELODYSPLASTIC SYNDROME
     Dosage: UNK
     Route: 048
     Dates: start: 201710, end: 201801

REACTIONS (5)
  - Spinal cord disorder [Recovering/Resolving]
  - Optic neuritis [Recovering/Resolving]
  - Diplegia [Recovering/Resolving]
  - Blindness [Recovering/Resolving]
  - Demyelination [Unknown]

NARRATIVE: CASE EVENT DATE: 201801
